FAERS Safety Report 13977539 (Version 2)
Quarter: 2017Q4

REPORT INFORMATION
  Report Type: Report from Study
  Country: IT (occurrence: IT)
  Receive Date: 20170915
  Receipt Date: 20171017
  Transmission Date: 20180321
  Serious: Yes (Hospitalization)
  Sender: FDA-Public Use
  Company Number: IT-TEVA-805254ACC

PATIENT
  Age: 80 Year
  Sex: Male

DRUGS (6)
  1. MICARDIS [Interacting]
     Active Substance: TELMISARTAN
     Indication: HYPERTENSION
     Route: 048
     Dates: start: 20170101, end: 20170830
  2. BISOPROLOL [Suspect]
     Active Substance: BISOPROLOL
     Indication: HYPERTENSION
     Dosage: 1.25 MILLIGRAM DAILY;
     Route: 048
     Dates: start: 20170101, end: 20170830
  3. FISIOTENS - 0,2 MG COMPRESSE RIVESTITE CON FILM [Interacting]
     Active Substance: MOXONIDINE
     Indication: HYPERTENSION
     Dosage: 2 DOSAGE FORMS DAILY;
     Route: 048
     Dates: start: 20170101, end: 20170830
  4. ALLOPURINOL. [Concomitant]
     Active Substance: ALLOPURINOL
     Indication: PRODUCT USED FOR UNKNOWN INDICATION
  5. CARDURA [Interacting]
     Active Substance: DOXAZOSIN MESYLATE
     Indication: HYPERTENSION
     Dosage: 3 DOSAGE FORMS DAILY;
     Route: 048
     Dates: start: 20170101, end: 20170830
  6. FUROSEMIDE. [Concomitant]
     Active Substance: FUROSEMIDE
     Indication: PRODUCT USED FOR UNKNOWN INDICATION
     Dosage: 25 MG

REACTIONS (5)
  - Pleural effusion [Unknown]
  - Gravitational oedema [Unknown]
  - Drug interaction [Unknown]
  - Bradycardia [Unknown]
  - Cardiac failure [Unknown]

NARRATIVE: CASE EVENT DATE: 20170830
